FAERS Safety Report 6977262-X (Version None)
Quarter: 2010Q3

REPORT INFORMATION
  Report Type: 
  Country: None (occurrence: None)
  Receive Date: 20100910
  Receipt Date: 20100901
  Transmission Date: 20110219
  Serious: Yes (Hospitalization)
  Sender: FDA-Public Use
  Company Number: GXKR2010GB09981

PATIENT
  Sex: Female

DRUGS (1)
  1. PHENOXYMETHYLPENICILLIN [Suspect]
     Dosage: UNK
     Route: 048
     Dates: start: 20091113

REACTIONS (3)
  - PRODUCT EXPIRATION DATE ISSUE [None]
  - RASH GENERALISED [None]
  - VOMITING [None]
